FAERS Safety Report 6083185-3 (Version None)
Quarter: 2009Q1

REPORT INFORMATION
  Report Type: 
  Country: None (occurrence: None)
  Receive Date: 20090213
  Receipt Date: 20090213
  Transmission Date: 20090719
  Serious: Yes (Life-Threatening)
  Sender: FDA-Public Use
  Company Number: None

PATIENT
  Age: 47 Year
  Sex: Female
  Weight: 90.2658 kg

DRUGS (2)
  1. FENFLURAMINE [Suspect]
     Dosage: ORAL
     Route: 048
     Dates: start: 19960528
  2. FASTIN [Suspect]
     Dosage: ORAL
     Route: 048
     Dates: start: 19970416

REACTIONS (4)
  - BLOOD PRESSURE IMMEASURABLE [None]
  - DYSPNOEA [None]
  - FATIGUE [None]
  - OEDEMA PERIPHERAL [None]
